FAERS Safety Report 9862260 (Version 7)
Quarter: 2015Q2

REPORT INFORMATION
  Report Type: Spontaneous
  Country: US (occurrence: US)
  Receive Date: 20140203
  Receipt Date: 20150415
  Transmission Date: 20150821
  Serious: Yes (Hospitalization, Other)
  Sender: FDA-Public Use
  Company Number: US-009507513-1401USA011275

PATIENT
  Sex: Female
  Weight: 78.46 kg

DRUGS (8)
  1. FOSAMAX PLUS D [Suspect]
     Active Substance: ALENDRONATE SODIUM\CHOLECALCIFEROL
     Indication: OSTEOPOROSIS PROPHYLAXIS
     Dosage: 70 MG/2800 IU, QW
     Route: 048
     Dates: start: 2005, end: 2011
  2. CYANOCOBALAMIN. [Concomitant]
     Active Substance: CYANOCOBALAMIN
     Indication: PRODUCT USED FOR UNKNOWN INDICATION
     Dosage: 5000 MICROGRAM, UNK
     Dates: start: 1994
  3. VITAMINS (UNSPECIFIED) [Concomitant]
     Active Substance: VITAMINS
     Indication: PRODUCT USED FOR UNKNOWN INDICATION
     Dosage: UNK
     Dates: start: 1994
  4. FOSAMAX [Suspect]
     Active Substance: ALENDRONATE SODIUM
     Indication: OSTEOPOROSIS PROPHYLAXIS
     Dosage: 70 MG, QW
     Route: 048
     Dates: start: 2008, end: 2011
  5. ARNICA [Concomitant]
     Indication: PRODUCT USED FOR UNKNOWN INDICATION
     Dosage: 1 DF, QD
     Dates: start: 1994
  6. FOSAMAX [Suspect]
     Active Substance: ALENDRONATE SODIUM
     Indication: OSTEOPOROSIS PROPHYLAXIS
     Dosage: 10 MG, QD
     Route: 048
     Dates: start: 2000, end: 2005
  7. FOSAMAX [Suspect]
     Active Substance: ALENDRONATE SODIUM
     Dosage: 70 MG, QW
     Route: 048
     Dates: start: 2000, end: 2005
  8. CITRACAL + D [Concomitant]
     Active Substance: CALCIUM CITRATE\VITAMIN D
     Indication: PRODUCT USED FOR UNKNOWN INDICATION
     Dosage: 600 IU, UNK
     Dates: start: 1994

REACTIONS (44)
  - Cardiac pacemaker insertion [Unknown]
  - Neuritis [Not Recovered/Not Resolved]
  - Overdose [Unknown]
  - Tinea pedis [Recovered/Resolved]
  - Tachycardia [Unknown]
  - Micturition urgency [Unknown]
  - Shoulder operation [Unknown]
  - Urinary incontinence [Unknown]
  - Intramedullary rod insertion [Unknown]
  - Medical device change [Recovering/Resolving]
  - Urinary retention [Unknown]
  - Fall [Unknown]
  - Foot deformity [Unknown]
  - Sinus node dysfunction [Unknown]
  - Thrombocytopenia [Unknown]
  - Malnutrition [Unknown]
  - Hysterectomy [Unknown]
  - Drug ineffective [Unknown]
  - Endometrial cancer [Unknown]
  - Pelvic fracture [Unknown]
  - Tooth extraction [Unknown]
  - Dyslipidaemia [Unknown]
  - Hypothyroidism [Unknown]
  - Wrist fracture [Unknown]
  - Postoperative ileus [Unknown]
  - Gastrooesophageal reflux disease [Unknown]
  - Dysuria [Unknown]
  - Osteoarthritis [Unknown]
  - Arthritis [Unknown]
  - Cataract operation [Unknown]
  - Arthralgia [Not Recovered/Not Resolved]
  - Anaemia postoperative [Unknown]
  - Pelvic fracture [Unknown]
  - Fracture nonunion [Unknown]
  - Drug hypersensitivity [Unknown]
  - Femur fracture [Unknown]
  - Intramedullary rod insertion [Unknown]
  - Osteoporosis [Not Recovered/Not Resolved]
  - Urinary tract infection [Unknown]
  - Appendicectomy [Unknown]
  - Tonsillectomy [Unknown]
  - Femur fracture [Recovering/Resolving]
  - Procedural haemorrhage [Recovering/Resolving]
  - Anaemia [Unknown]

NARRATIVE: CASE EVENT DATE: 2000
